FAERS Safety Report 9656970 (Version 2)
Quarter: 2013Q4

REPORT INFORMATION
  Report Type: Spontaneous
  Country: US (occurrence: US)
  Receive Date: 20131030
  Receipt Date: 20131107
  Transmission Date: 20140711
  Serious: No
  Sender: FDA-Public Use
  Company Number: US-PFIZER INC-2013309044

PATIENT
  Age: 81 Year
  Sex: Female
  Weight: 73.92 kg

DRUGS (4)
  1. LYRICA [Suspect]
     Indication: HERPES ZOSTER
     Dosage: 50 MG, 3X/DAY
     Dates: start: 20131009
  2. LYRICA [Suspect]
     Indication: POST HERPETIC NEURALGIA
  3. ARMOUR THYROID [Concomitant]
     Indication: HYPOTHYROIDISM
     Dosage: UNK
  4. ARMOUR THYROID [Concomitant]
     Dosage: UNK

REACTIONS (2)
  - Drug ineffective [Unknown]
  - Pain [Not Recovered/Not Resolved]
